FAERS Safety Report 20047745 (Version 7)
Quarter: 2022Q3

REPORT INFORMATION
  Report Type: Spontaneous
  Country: US (occurrence: US)
  Receive Date: 20211109
  Receipt Date: 20220711
  Transmission Date: 20221027
  Serious: No
  Sender: FDA-Public Use
  Company Number: US-BIOGEN-2021BI01066178

PATIENT
  Sex: Female

DRUGS (5)
  1. VUMERITY [Suspect]
     Active Substance: DIROXIMEL FUMARATE
     Indication: Multiple sclerosis
     Route: 050
     Dates: start: 20210415
  2. VUMERITY [Suspect]
     Active Substance: DIROXIMEL FUMARATE
     Dosage: TAKE 2 CAPSULES (462MG) BY MOUTH TWICE DAILY.
     Route: 050
  3. OXCARBAZEPINE [Concomitant]
     Active Substance: OXCARBAZEPINE
     Route: 050
  4. BACLOFEN [Concomitant]
     Active Substance: BACLOFEN
     Route: 050
  5. VITAMIN C [Concomitant]
     Active Substance: ASCORBIC ACID
     Route: 050

REACTIONS (21)
  - Product dose omission issue [Unknown]
  - Back pain [Not Recovered/Not Resolved]
  - Musculoskeletal disorder [Not Recovered/Not Resolved]
  - Drug ineffective [Unknown]
  - Muscle spasms [Unknown]
  - Malaise [Unknown]
  - Haematochezia [Unknown]
  - Chromaturia [Unknown]
  - Urine odour abnormal [Unknown]
  - Pain [Unknown]
  - Trismus [Unknown]
  - Facial spasm [Unknown]
  - Constipation [Unknown]
  - Mobility decreased [Unknown]
  - Gastric disorder [Unknown]
  - Muscle disorder [Unknown]
  - Muscular weakness [Unknown]
  - Bladder spasm [Unknown]
  - Fall [Recovered/Resolved]
  - Vomiting [Unknown]
  - Abdominal pain upper [Unknown]
